FAERS Safety Report 9960512 (Version 1)
Quarter: 2014Q1

REPORT INFORMATION
  Report Type: Spontaneous
  Country: US (occurrence: None)
  Receive Date: 20140228
  Receipt Date: 20140228
  Transmission Date: 20141002
  Serious: Yes (Life-Threatening, Other)
  Sender: FDA-Public Use
  Company Number: 2014EXPUS00039

PATIENT
  Sex: Female

DRUGS (2)
  1. EXPAREL [Suspect]
     Indication: POSTOPERATIVE ANALGESIA
     Dates: start: 20140205, end: 20140205
  2. LIDOCAINE AND EPINEPHRINE [Suspect]
     Indication: PRODUCT USED FOR UNKNOWN INDICATION
     Dates: start: 20140205, end: 20140205

REACTIONS (2)
  - Ventricular tachycardia [None]
  - Procedural complication [None]
